FAERS Safety Report 24062782 (Version 1)
Quarter: 2024Q3

REPORT INFORMATION
  Report Type: Spontaneous
  Country: MA (occurrence: MA)
  Receive Date: 20240709
  Receipt Date: 20240709
  Transmission Date: 20241016
  Serious: Yes (Hospitalization)
  Sender: STRIDES
  Company Number: MA-STRIDES ARCOLAB LIMITED-2024SP008013

PATIENT
  Age: 17 Year
  Sex: Male

DRUGS (1)
  1. METRONIDAZOLE [Suspect]
     Active Substance: METRONIDAZOLE
     Indication: Diarrhoea
     Dosage: UNK
     Route: 065

REACTIONS (3)
  - Cerebellar syndrome [Recovered/Resolved]
  - Neurotoxicity [Recovered/Resolved]
  - Off label use [Unknown]
